FAERS Safety Report 6340164-6 (Version None)
Quarter: 2009Q3

REPORT INFORMATION
  Report Type: 
  Country: None (occurrence: None)
  Receive Date: 20090903
  Receipt Date: 20090825
  Transmission Date: 20100115
  Serious: Yes (Hospitalization)
  Sender: FDA-Public Use
  Company Number: US-GILEAD-2009-0023901

PATIENT
  Age: 39 Year
  Sex: Male
  Weight: 98 kg

DRUGS (1)
  1. VISTIDE [Suspect]
     Indication: PAPILLOMA VIRAL INFECTION
     Route: 061
     Dates: start: 20090520, end: 20090803

REACTIONS (2)
  - HERPES ZOSTER [None]
  - PNEUMONIA [None]
